FAERS Safety Report 5165587-2 (Version None)
Quarter: 2006Q4

REPORT INFORMATION
  Report Type: 
  Country: None (occurrence: None)
  Receive Date: 20061206
  Receipt Date: 20061201
  Transmission Date: 20070319
  Serious: Yes (Disabling)
  Sender: FDA-Public Use
  Company Number: FR-GLAXOSMITHKLINE-B0449041A

PATIENT
  Age: 6 Month
  Sex: Male

DRUGS (1)
  1. DEROXAT [Suspect]
     Dates: end: 20040515

REACTIONS (3)
  - CEREBRAL PALSY [None]
  - CONGENITAL BRAIN DAMAGE [None]
  - DRUG EXPOSURE DURING PREGNANCY [None]
